FAERS Safety Report 19376937 (Version 8)
Quarter: 2022Q3

REPORT INFORMATION
  Report Type: Spontaneous
  Country: CA (occurrence: CA)
  Receive Date: 20210605
  Receipt Date: 20220709
  Transmission Date: 20221027
  Serious: Yes (Other)
  Sender: FDA-Public Use
  Company Number: CA-CELLTRION INC.-2021CA004922

PATIENT

DRUGS (13)
  1. INFLECTRA [Suspect]
     Active Substance: INFLIXIMAB-DYYB
     Indication: Rheumatoid arthritis
     Dosage: 300 MG AT 0, 2, 6, THEN EVERY 8 WEEKS
     Route: 041
     Dates: start: 20170714, end: 20171130
  2. INFLECTRA [Suspect]
     Active Substance: INFLIXIMAB-DYYB
     Dosage: 300 MG EVERY 6 WEEKS
     Route: 041
     Dates: start: 20180111
  3. INFLECTRA [Suspect]
     Active Substance: INFLIXIMAB-DYYB
     Dosage: 300 MG EVERY 6 WEEKS
     Route: 041
     Dates: start: 20210408
  4. INFLECTRA [Suspect]
     Active Substance: INFLIXIMAB-DYYB
     Dosage: 300 MG EVERY 6 WEEKS
     Route: 041
     Dates: start: 20210601
  5. INFLECTRA [Suspect]
     Active Substance: INFLIXIMAB-DYYB
     Dosage: 300 MG EVERY 6 WEEKS
     Route: 041
     Dates: start: 20210601
  6. INFLECTRA [Suspect]
     Active Substance: INFLIXIMAB-DYYB
     Dosage: 300 MG EVERY 6 WEEKS
     Route: 041
     Dates: start: 20210713
  7. INFLECTRA [Suspect]
     Active Substance: INFLIXIMAB-DYYB
     Dosage: 300 MG EVERY 6 WEEKS
     Route: 041
     Dates: start: 20210824
  8. INFLECTRA [Suspect]
     Active Substance: INFLIXIMAB-DYYB
     Dosage: 300 MG EVERY 6 WEEKS
     Route: 041
     Dates: start: 20211005
  9. INFLECTRA [Suspect]
     Active Substance: INFLIXIMAB-DYYB
     Dosage: 300 MG , EVERY 6 WEEKS
     Route: 041
     Dates: start: 20220223
  10. INFLECTRA [Suspect]
     Active Substance: INFLIXIMAB-DYYB
     Dosage: 300 MG ,EVERY 6 WEEKS
     Route: 041
     Dates: start: 20220405
  11. INFLECTRA [Suspect]
     Active Substance: INFLIXIMAB-DYYB
     Dosage: 300 MG ,EVERY 6 WEEKS
     Route: 041
     Dates: start: 20220517
  12. INFLECTRA [Suspect]
     Active Substance: INFLIXIMAB-DYYB
     Dosage: 300 MG ,EVERY 6 WEEKS
     Route: 041
     Dates: start: 20220628
  13. METHOTREXATE [Concomitant]
     Active Substance: METHOTREXATE
     Indication: Rheumatoid arthritis
     Dosage: 25 MG, WEEKLY
     Route: 048

REACTIONS (11)
  - Malignant melanoma [Unknown]
  - Incision site inflammation [Recovering/Resolving]
  - Incision site erythema [Recovering/Resolving]
  - Blood pressure systolic increased [Unknown]
  - Blood pressure fluctuation [Not Recovered/Not Resolved]
  - Heart rate decreased [Recovered/Resolved]
  - Condition aggravated [Unknown]
  - Tinnitus [Not Recovered/Not Resolved]
  - Weight increased [Not Recovered/Not Resolved]
  - Off label use [Unknown]
  - Inappropriate schedule of product administration [Unknown]

NARRATIVE: CASE EVENT DATE: 20180111
